FAERS Safety Report 7424634-5 (Version None)
Quarter: 2011Q2

REPORT INFORMATION
  Report Type: 
  Country: None (occurrence: None)
  Receive Date: 20110419
  Receipt Date: 20110408
  Transmission Date: 20111010
  Serious: Yes (Other)
  Sender: FDA-Public Use
  Company Number: IT-PFIZER INC-2011085327

PATIENT
  Sex: Female

DRUGS (2)
  1. RANITIDINE [Suspect]
     Route: 065
  2. ONDANSETRON [Suspect]
     Route: 065

REACTIONS (3)
  - ANAPHYLACTIC REACTION [None]
  - CHOKING SENSATION [None]
  - TACHYCARDIA [None]
